FAERS Safety Report 9442881 (Version 1)
Quarter: 2013Q3

REPORT INFORMATION
  Report Type: Spontaneous
  Country: US (occurrence: None)
  Receive Date: 20130805
  Receipt Date: 20130805
  Transmission Date: 20140515
  Serious: Yes (Life-Threatening, Other)
  Sender: FDA-Public Use
  Company Number: None

PATIENT
  Age: 29 Year
  Sex: Female
  Weight: 166.02 kg

DRUGS (11)
  1. ONDANSETRON [Suspect]
     Indication: ABDOMINAL DISCOMFORT
     Dosage: 8MG 3X/DAY PO
     Route: 048
     Dates: start: 20130729, end: 20130730
  2. GABAPENTIN [Concomitant]
  3. ZYRTEC [Concomitant]
  4. CRESTOR [Concomitant]
  5. LEXAPRO [Concomitant]
  6. LISINOPRIL [Concomitant]
  7. UNITHROID [Concomitant]
  8. VICTOZA [Concomitant]
  9. FENOFIBRATE [Concomitant]
  10. TYLENOL [Concomitant]
  11. FLONASE [Concomitant]

REACTIONS (1)
  - Anxiety [None]
